FAERS Safety Report 17014408 (Version 1)
Quarter: 2019Q4

REPORT INFORMATION
  Report Type: Spontaneous
  Country: IT (occurrence: IT)
  Receive Date: 20191111
  Receipt Date: 20191111
  Transmission Date: 20200122
  Serious: Yes (Other)
  Sender: FDA-Public Use
  Company Number: IT-TEVA-2019-IT-1135466

PATIENT
  Age: 76 Year
  Sex: Female

DRUGS (1)
  1. EPIRUBICINA TEVA 2 MG/ML SOLUZIONE INIETTABILE O PER INFUSIONE [Suspect]
     Active Substance: EPIRUBICIN
     Indication: BLADDER NEOPLASM
     Dosage: 80MG/ WEEK/ 35 DAYS
     Route: 043
     Dates: start: 20190820, end: 20190924

REACTIONS (3)
  - Pain [Not Recovered/Not Resolved]
  - Bladder irritation [Not Recovered/Not Resolved]
  - Haematuria [Not Recovered/Not Resolved]

NARRATIVE: CASE EVENT DATE: 20190924
